FAERS Safety Report 11936451 (Version 5)
Quarter: 2016Q1

REPORT INFORMATION
  Report Type: Report from Study
  Country: US (occurrence: US)
  Receive Date: 20160121
  Receipt Date: 20160328
  Transmission Date: 20160526
  Serious: Yes (Hospitalization)
  Sender: FDA-Public Use
  Company Number: US-BIOGEN-2015BI151218

PATIENT
  Age: 53 Year
  Sex: Female

DRUGS (2)
  1. TECFIDERA [Suspect]
     Active Substance: DIMETHYL FUMARATE
     Route: 048
     Dates: start: 20140423, end: 20150412
  2. TECFIDERA [Suspect]
     Active Substance: DIMETHYL FUMARATE
     Indication: MULTIPLE SCLEROSIS
     Route: 048
     Dates: start: 20140416, end: 20140422

REACTIONS (14)
  - Platelet count decreased [Unknown]
  - Phlebitis [Unknown]
  - Incision site infection [Recovered/Resolved]
  - Hypophagia [Recovered/Resolved]
  - Blood glucose decreased [Unknown]
  - Weight decreased [Unknown]
  - Choking [Recovered/Resolved]
  - Gastric disorder [Recovered/Resolved]
  - White blood cell count decreased [Unknown]
  - Abdominal discomfort [Unknown]
  - Vomiting [Unknown]
  - Dysphagia [Unknown]
  - Foreign body [Unknown]
  - Oesophageal carcinoma [Recovered/Resolved]

NARRATIVE: CASE EVENT DATE: 201504
